FAERS Safety Report 4394249-4 (Version None)
Quarter: 2004Q3

REPORT INFORMATION
  Report Type: 
  Country: None (occurrence: None)
  Receive Date: 20040707
  Receipt Date: 20040701
  Transmission Date: 20050211
  Serious: Yes (Other)
  Sender: FDA-Public Use
  Company Number: 2004221086US

PATIENT
  Age: 74 Year
  Sex: Female

DRUGS (1)
  1. ZYVOX [Suspect]
     Dosage: 600 MG, BID, ORAL
     Route: 048

REACTIONS (2)
  - RASH [None]
  - RASH VESICULAR [None]
